FAERS Safety Report 7344533-7 (Version None)
Quarter: 2011Q1

REPORT INFORMATION
  Report Type: 
  Country: None (occurrence: None)
  Receive Date: 20110308
  Receipt Date: 20110308
  Transmission Date: 20110831
  Serious: Yes (Other)
  Sender: FDA-Public Use
  Company Number: None

PATIENT
  Age: 28 Year
  Sex: Female
  Weight: 65.7716 kg

DRUGS (1)
  1. SAPHRIS [Suspect]

REACTIONS (5)
  - FALL [None]
  - ASTHENIA [None]
  - HYPOVENTILATION [None]
  - DYSPNOEA [None]
  - DIZZINESS [None]
